FAERS Safety Report 5888134-6 (Version None)
Quarter: 2008Q3

REPORT INFORMATION
  Report Type: 
  Country: None (occurrence: None)
  Receive Date: 20080915
  Receipt Date: 20080915
  Transmission Date: 20090109
  Serious: Yes (Other)
  Sender: FDA-Public Use
  Company Number: None

PATIENT
  Age: 40 Year
  Sex: Female
  Weight: 63.5036 kg

DRUGS (2)
  1. TIZANIDINE HCL [Suspect]
     Indication: MUSCULOSKELETAL PAIN
     Dosage: 4 MG Q 8 HRS PO
     Route: 048
     Dates: start: 20080812, end: 20080914
  2. TIZANIDINE HCL [Suspect]
     Indication: NECK PAIN
     Dosage: 4 MG Q 8 HRS PO
     Route: 048
     Dates: start: 20080812, end: 20080914

REACTIONS (1)
  - HALLUCINATION, VISUAL [None]
